FAERS Safety Report 26075595 (Version 1)
Quarter: 2025Q4

REPORT INFORMATION
  Report Type: Spontaneous
  Country: US (occurrence: US)
  Receive Date: 20251121
  Receipt Date: 20251121
  Transmission Date: 20260118
  Serious: No
  Sender: BRISTOL-MYERS SQUIBB COMPANY
  Company Number: US-BRISTOL-MYERS SQUIBB COMPANY-2025-157573

PATIENT
  Age: 30 Year
  Sex: Male

DRUGS (4)
  1. COBENFY [Suspect]
     Active Substance: TROSPIUM CHLORIDE\XANOMELINE
     Indication: Schizophrenia
     Dosage: 50/20 BID, STAYED ON THIS DOSE FOR A TOTAL OF 4 WEEKS
     Route: 048
  2. COBENFY [Suspect]
     Active Substance: TROSPIUM CHLORIDE\XANOMELINE
     Dosage: 100/20 BID. PATIENT WAS ON THIS DOSAGE FOR 2 WEEKS
     Route: 048
  3. HALDOL [Concomitant]
     Active Substance: HALOPERIDOL
     Indication: Schizophrenia
  4. HALDOL [Concomitant]
     Active Substance: HALOPERIDOL
     Route: 048

REACTIONS (2)
  - Muscular weakness [Unknown]
  - Dysstasia [Unknown]
